FAERS Safety Report 9524243 (Version 1)
Quarter: 2013Q3

REPORT INFORMATION
  Report Type: Spontaneous
  Country: JP (occurrence: None)
  Receive Date: 20130912
  Receipt Date: 20130912
  Transmission Date: 20140515
  Serious: Yes (Hospitalization)
  Sender: FDA-Public Use
  Company Number: 2013-002829

PATIENT
  Age: 66 Year
  Sex: Female

DRUGS (9)
  1. BENET [Suspect]
     Indication: RHEUMATOID ARTHRITIS
     Route: 048
     Dates: end: 20090403
  2. SPECIFIC ANTIRHEUMATIC AGENTS [Suspect]
     Route: 048
     Dates: start: 20080822, end: 20090403
  3. PREDNISOLONE (PREDNISOLONE) [Concomitant]
  4. MUCOSTA (REBAMIPIDE) [Concomitant]
  5. ALFAROL (ALFACALCIDOL) [Concomitant]
  6. VOLTAREN/00372301 [Concomitant]
  7. RHEUMATREX/00113801 [Concomitant]
  8. FOLIAMIN (FOLIC ACID) [Concomitant]
  9. BOLPRESS (CANDESARTAN CILEXETIL) [Concomitant]

REACTIONS (8)
  - Eyelid oedema [None]
  - Ocular discomfort [None]
  - Nausea [None]
  - Vomiting [None]
  - Diplopia [None]
  - Visual impairment [None]
  - Feeling abnormal [None]
  - IIIrd nerve paralysis [None]
